FAERS Safety Report 5639850-2 (Version None)
Quarter: 2008Q1

REPORT INFORMATION
  Report Type: 
  Country: None (occurrence: None)
  Receive Date: 20080226
  Receipt Date: 20080226
  Transmission Date: 20080703
  Serious: Yes (Hospitalization)
  Sender: FDA-Public Use
  Company Number: None

PATIENT
  Age: 49 Year
  Sex: Male
  Weight: 102.0593 kg

DRUGS (1)
  1. CHANTIX [Suspect]
     Indication: SMOKING CESSATION THERAPY
     Dates: start: 20071215, end: 20080105

REACTIONS (4)
  - MAJOR DEPRESSION [None]
  - MYOCARDIAL INFARCTION [None]
  - PANIC ATTACK [None]
  - PARANOIA [None]
